FAERS Safety Report 21649331 (Version 1)
Quarter: 2022Q4

REPORT INFORMATION
  Report Type: Spontaneous
  Country: US (occurrence: US)
  Receive Date: 20221128
  Receipt Date: 20221128
  Transmission Date: 20230112
  Serious: No
  Sender: FDA-Public Use
  Company Number: US-STRIDES ARCOLAB LIMITED-2022SP013587

PATIENT
  Age: 33 Year
  Sex: Male

DRUGS (8)
  1. GABAPENTIN [Suspect]
     Active Substance: GABAPENTIN
     Indication: Prophylaxis
     Dosage: 600 MILLIGRAM
     Route: 065
  2. GABAPENTIN [Suspect]
     Active Substance: GABAPENTIN
     Indication: Withdrawal syndrome
  3. GABAPENTIN [Suspect]
     Active Substance: GABAPENTIN
     Indication: Evidence based treatment
  4. CLONIDINE [Suspect]
     Active Substance: CLONIDINE
     Indication: Prophylaxis
     Dosage: 0.2 MILLIGRAM
     Route: 048
  5. CLONIDINE [Suspect]
     Active Substance: CLONIDINE
     Indication: Withdrawal syndrome
  6. CLONIDINE [Suspect]
     Active Substance: CLONIDINE
     Indication: Evidence based treatment
  7. NALOXONE [Concomitant]
     Active Substance: NALOXONE
     Indication: Drug use disorder
     Dosage: 4 MILLIGRAM
     Route: 045
  8. BUPRENORPHINE\NALOXONE [Concomitant]
     Active Substance: BUPRENORPHINE\NALOXONE
     Indication: Drug use disorder
     Dosage: UNK
     Route: 065

REACTIONS (1)
  - Intentional product misuse [Unknown]
